FAERS Safety Report 18937801 (Version 1)
Quarter: 2021Q1

REPORT INFORMATION
  Report Type: Spontaneous
  Country: US (occurrence: US)
  Receive Date: 20210225
  Receipt Date: 20210225
  Transmission Date: 20210420
  Serious: Yes (Hospitalization)
  Sender: FDA-Public Use
  Company Number: US-SA-2021SA060280

PATIENT
  Sex: Male

DRUGS (1)
  1. FABRAZYME [Suspect]
     Active Substance: AGALSIDASE BETA
     Indication: LIPIDOSIS
     Dosage: STRENGTH: 35 MG AND 5 MG SINGLE DOSE VIAL; QOW
     Route: 042
     Dates: start: 20150604

REACTIONS (2)
  - Renal disorder [Unknown]
  - Heart rate increased [Unknown]
